FAERS Safety Report 5234202-1 (Version None)
Quarter: 2007Q1

REPORT INFORMATION
  Report Type: 
  Country: None (occurrence: None)
  Receive Date: 20070209
  Receipt Date: 20070206
  Transmission Date: 20070707
  Serious: Yes (Death, Life-Threatening, Hospitalization, Other)
  Sender: FDA-Public Use
  Company Number: FR-BAYER-200611138BFR

PATIENT
  Age: 53 Year
  Sex: Male
  Weight: 61 kg

DRUGS (6)
  1. NEXAVAR [Suspect]
     Indication: METASTATIC RENAL CELL CARCINOMA
     Dosage: AS USED: 200 MG  UNIT DOSE: 200 MG
     Route: 048
     Dates: start: 20060901, end: 20060918
  2. KETOPROFEN [Suspect]
     Indication: ABDOMINAL PAIN
     Route: 048
     Dates: end: 20060913
  3. SOLUPRED [Suspect]
     Indication: UNEVALUABLE EVENT
     Route: 048
  4. PRAZEPAM [Concomitant]
     Indication: UNEVALUABLE EVENT
     Route: 048
  5. NICARDIPINE HCL [Concomitant]
     Indication: SECONDARY HYPERTENSION
     Route: 048
  6. SOPHIDONE LP [Concomitant]
     Indication: ABDOMINAL PAIN
     Route: 048

REACTIONS (5)
  - ASCITES [None]
  - DIARRHOEA [None]
  - HEMIPLEGIA [None]
  - INTESTINAL PERFORATION [None]
  - PNEUMOPERITONEUM [None]
